FAERS Safety Report 4487589-1 (Version None)
Quarter: 2004Q4

REPORT INFORMATION
  Report Type: 
  Country: None (occurrence: None)
  Receive Date: 20041027
  Receipt Date: 20041027
  Transmission Date: 20050328
  Serious: Yes (Hospitalization)
  Sender: FDA-Public Use
  Company Number: None

PATIENT
  Age: 55 Year
  Sex: Female

DRUGS (10)
  1. LOTENSIN [Suspect]
     Indication: DIABETES MELLITUS
     Dosage: 10 MG   BID   ORAL
     Route: 048
  2. LOTENSIN [Suspect]
     Indication: HYPERTENSION
     Dosage: 10 MG   BID   ORAL
     Route: 048
  3. MYCOPHENOLATE MOFETIL -CELLCEPT- [Concomitant]
  4. NEORAL [Concomitant]
  5. AMITRIPTYLINE -ELAVIL- [Concomitant]
  6. GLIPIZIDE [Concomitant]
  7. LIPITOR [Concomitant]
  8. PREDNISONE [Concomitant]
  9. CLOTRIMAZOLE -MYCELEX- [Concomitant]
  10. NORVASC [Concomitant]

REACTIONS (2)
  - ANGIONEUROTIC OEDEMA [None]
  - PHARYNGOLARYNGEAL PAIN [None]
